FAERS Safety Report 9951130 (Version 1)
Quarter: 2014Q1

REPORT INFORMATION
  Report Type: Spontaneous
  Country: AU (occurrence: AU)
  Receive Date: 20140304
  Receipt Date: 20140304
  Transmission Date: 20141002
  Serious: Yes (Other)
  Sender: FDA-Public Use
  Company Number: AU-PFIZER INC-2014059900

PATIENT
  Sex: 0

DRUGS (1)
  1. GABAPENTIN [Suspect]
     Dosage: 300 MG, UNK

REACTIONS (2)
  - Respiratory depression [Unknown]
  - Sleep apnoea syndrome [Unknown]
